FAERS Safety Report 8623082-X (Version None)
Quarter: 2012Q3

REPORT INFORMATION
  Report Type: 
  Country: None (occurrence: None)
  Receive Date: 20120813
  Receipt Date: 20120731
  Transmission Date: 20120928
  Serious: Yes (Disabling, Other)
  Sender: FDA-Public Use
  Company Number: ACO_31333_2012

PATIENT
  Age: 59 Year
  Sex: Female
  Weight: 56.7 kg

DRUGS (4)
  1. AVONEX [Concomitant]
  2. AMPYRA [Suspect]
     Indication: GAIT DISTURBANCE
     Dosage: 10MG BID, ORAL ; 10 MG, QD, ORAL ; 10 MG, QD
     Route: 048
     Dates: start: 20120729
  3. AMPYRA [Suspect]
     Indication: GAIT DISTURBANCE
     Dosage: 10MG BID, ORAL ; 10 MG, QD, ORAL ; 10 MG, QD
     Route: 048
     Dates: start: 20110101
  4. MOBIC [Suspect]
     Indication: BACK DISORDER
     Dates: start: 20120301, end: 20120729

REACTIONS (6)
  - ARTHRITIS [None]
  - INAPPROPRIATE SCHEDULE OF DRUG ADMINISTRATION [None]
  - ABASIA [None]
  - HANGOVER [None]
  - SLEEP DISORDER [None]
  - INTERVERTEBRAL DISC DISORDER [None]
